FAERS Safety Report 10008054 (Version 1)
Quarter: 2014Q1

REPORT INFORMATION
  Report Type: Spontaneous
  Country: DE (occurrence: DE)
  Receive Date: 20140313
  Receipt Date: 20140313
  Transmission Date: 20141002
  Serious: Yes (Other)
  Sender: FDA-Public Use
  Company Number: DE-ELI_LILLY_AND_COMPANY-DE201403000195

PATIENT
  Sex: Male

DRUGS (3)
  1. EFIENT [Suspect]
     Indication: MYOCARDIAL INFARCTION
     Dosage: 10 MG, UNKNOWN
     Route: 048
     Dates: start: 201308
  2. EFIENT [Suspect]
     Indication: STENT PLACEMENT
  3. ASPIRIN [Concomitant]
     Dosage: 100 MG, UNKNOWN
     Dates: start: 201308

REACTIONS (1)
  - Basal cell carcinoma [Unknown]
